FAERS Safety Report 5147408-7 (Version None)
Quarter: 2006Q4

REPORT INFORMATION
  Report Type: 
  Country: None (occurrence: None)
  Receive Date: 20061103
  Receipt Date: 20061026
  Transmission Date: 20070319
  Serious: Yes (Other)
  Sender: FDA-Public Use
  Company Number: HQWYE693627OCT06

PATIENT
  Sex: Female
  Weight: 84.9 kg

DRUGS (2)
  1. PREMARIN [Suspect]
     Indication: OESTROGEN REPLACEMENT THERAPY
     Dosage: 0.625 MG, FREQUENCY NOT SPECIFIED; ORAL; 1.5 MG, FREQUENCY NOT SPECIFIED, ORAL
     Route: 048
     Dates: start: 19870101, end: 19940101
  2. PREMARIN [Suspect]
     Indication: OESTROGEN REPLACEMENT THERAPY
     Dosage: 0.625 MG, FREQUENCY NOT SPECIFIED; ORAL; 1.5 MG, FREQUENCY NOT SPECIFIED, ORAL
     Route: 048
     Dates: start: 19960101, end: 19990101

REACTIONS (2)
  - BREAST CANCER RECURRENT [None]
  - CATARACT [None]
